FAERS Safety Report 6860937-0 (Version None)
Quarter: 2010Q3

REPORT INFORMATION
  Report Type: 
  Country: None (occurrence: None)
  Receive Date: 20100715
  Receipt Date: 20100712
  Transmission Date: 20110219
  Serious: Yes (Death)
  Sender: FDA-Public Use
  Company Number: 2010SP012412

PATIENT
  Age: 42 Year
  Sex: Female

DRUGS (6)
  1. REMERON [Suspect]
     Indication: DEPRESSED MOOD
     Dosage: 15 MG; QD; PO
     Route: 048
     Dates: start: 20091221, end: 20091222
  2. REMERON [Suspect]
     Indication: SUICIDAL IDEATION
     Dosage: 15 MG; QD; PO
     Route: 048
     Dates: start: 20091221, end: 20091222
  3. MYSLEE [Concomitant]
  4. RIZE [Concomitant]
  5. DEPAS [Concomitant]
  6. DEPROMEL [Concomitant]

REACTIONS (1)
  - COMPLETED SUICIDE [None]
